FAERS Safety Report 5097380-3 (Version None)
Quarter: 2006Q3

REPORT INFORMATION
  Report Type: 
  Country: None (occurrence: None)
  Receive Date: 20060901
  Receipt Date: 20060818
  Transmission Date: 20061208
  Serious: Yes (Hospitalization)
  Sender: FDA-Public Use
  Company Number: 2006SI007822

PATIENT
  Age: 58 Year
  Sex: Female

DRUGS (1)
  1. METHOTREXATE [Suspect]
     Indication: RHEUMATOID ARTHRITIS
     Dosage: 2.5 MG; UNKNOWN; PO
     Route: 048
     Dates: end: 20060816

REACTIONS (4)
  - CHEST PAIN [None]
  - DYSPNOEA [None]
  - HEPATIC ENZYME INCREASED [None]
  - PANCREATITIS [None]
